FAERS Safety Report 18756585 (Version 2)
Quarter: 2021Q1

REPORT INFORMATION
  Report Type: Report from Study
  Country: GB (occurrence: GB)
  Receive Date: 20210119
  Receipt Date: 20210127
  Transmission Date: 20210419
  Serious: Yes (Other)
  Sender: FDA-Public Use
  Company Number: GB-ACCORD-214952

PATIENT
  Age: 59 Year
  Sex: Female

DRUGS (2)
  1. METHOTREXATE. [Suspect]
     Active Substance: METHOTREXATE
     Indication: PRODUCT USED FOR UNKNOWN INDICATION
     Route: 065
  2. BENEPALI [Concomitant]
     Active Substance: ETANERCEPT
     Indication: RHEUMATOID ARTHRITIS
     Dosage: 50 MG, WEEKLY
     Route: 058

REACTIONS (7)
  - Malaise [Unknown]
  - Herpes zoster [Unknown]
  - Infection [Unknown]
  - Lower respiratory tract infection [Unknown]
  - Abscess [Unknown]
  - Pain [Unknown]
  - Sleep disorder [Unknown]
